FAERS Safety Report 22122296 (Version 3)
Quarter: 2023Q2

REPORT INFORMATION
  Report Type: Spontaneous
  Country: FR (occurrence: FR)
  Receive Date: 20230321
  Receipt Date: 20230519
  Transmission Date: 20230721
  Serious: Yes (Other)
  Sender: FDA-Public Use
  Company Number: FR-SA-SAC20230216000056

PATIENT
  Age: 47 Year
  Sex: Female

DRUGS (4)
  1. ACETAMINOPHEN [Suspect]
     Active Substance: ACETAMINOPHEN
     Indication: Headache
     Dosage: 1G
     Route: 065
  2. ACETAMINOPHEN [Suspect]
     Active Substance: ACETAMINOPHEN
     Dosage: 1G?DOSAGE FORM: BDF-0096
  3. HERBALS\MINERALS\VITAMINS [Suspect]
     Active Substance: HERBALS\MINERALS\VITAMINS
     Indication: Stress
     Dosage: 1 SACHET?ROA-20053000?2?1
     Route: 048
     Dates: start: 202208, end: 202208
  4. HERBALS\MINERALS\VITAMINS [Suspect]
     Active Substance: HERBALS\MINERALS\VITAMINS
     Indication: Anxiety
     Dosage: UNK

REACTIONS (13)
  - Angioedema [None]
  - Anaphylactic reaction [None]
  - Abdominal pain upper [None]
  - Selective eating disorder [None]
  - Loss of personal independence in daily activities [None]
  - Tachycardia [None]
  - Salivary hypersecretion [None]
  - Dysphagia [None]
  - Pruritus [None]
  - Erythema [None]
  - Urticaria [None]
  - Hypersensitivity [None]
  - Drug hypersensitivity [None]
